FAERS Safety Report 4320888-2 (Version None)
Quarter: 2004Q1

REPORT INFORMATION
  Report Type: 
  Country: None (occurrence: None)
  Receive Date: 20040322
  Receipt Date: 20040315
  Transmission Date: 20041129
  Serious: Yes (Death, Hospitalization)
  Sender: FDA-Public Use
  Company Number: PHBS2004BR03608

PATIENT
  Age: 54 Year
  Sex: Female
  Weight: 65 kg

DRUGS (2)
  1. TEGRETOL-XR [Suspect]
     Indication: CONVULSION
     Dosage: 400 MG, BID
     Route: 048
     Dates: start: 19980101
  2. TEGRETOL [Suspect]
     Indication: CONVULSION
     Dosage: 200 MG/DAY
     Route: 048
     Dates: start: 19980101

REACTIONS (6)
  - ASTHENIA [None]
  - ASTROCYTOMA [None]
  - EATING DISORDER [None]
  - MALIGNANT NEOPLASM PROGRESSION [None]
  - PNEUMONIA [None]
  - RESPIRATORY FAILURE [None]
